FAERS Safety Report 5259378-1 (Version None)
Quarter: 2007Q1

REPORT INFORMATION
  Report Type: 
  Country: None (occurrence: None)
  Receive Date: 20070305
  Receipt Date: 20070220
  Transmission Date: 20070707
  Serious: Yes (Hospitalization)
  Sender: FDA-Public Use
  Company Number: 2007AL000725

PATIENT
  Age: 70 Year
  Sex: Female

DRUGS (5)
  1. CYCLOBENZAPRINE HCL TABLETS, USP 10 MG (AMIDE) [Suspect]
     Indication: MUSCLE SPASMS
     Dosage: 10 MG; TID; PO
     Route: 048
  2. PHENELZINE [Concomitant]
  3. ACETAMINOPHEN [Concomitant]
  4. OXYCODONE HCL [Concomitant]
  5. CEFAZOLIN [Concomitant]

REACTIONS (1)
  - SEROTONIN SYNDROME [None]
